FAERS Safety Report 23125313 (Version 1)
Quarter: 2023Q4

REPORT INFORMATION
  Report Type: Report from Study
  Country: NL (occurrence: NL)
  Receive Date: 20231030
  Receipt Date: 20231030
  Transmission Date: 20240109
  Serious: Yes (Other)
  Sender: FDA-Public Use
  Company Number: NL-VER-202300082

PATIENT
  Sex: Male

DRUGS (3)
  1. TRIPTORELIN PAMOATE [Suspect]
     Active Substance: TRIPTORELIN PAMOATE
     Indication: Prostate cancer
     Dosage: 1.00 X 24 WEEKS; ZINR: 15533212 (22.5 MG,24 WK)
     Route: 030
     Dates: start: 20210218, end: 20210218
  2. TRIPTORELIN PAMOATE [Suspect]
     Active Substance: TRIPTORELIN PAMOATE
     Indication: Prostate cancer
     Dosage: 1.00 X 24 WEEKS; ZINR: 15533212 (22.5 MG,24 WK)
     Route: 030
     Dates: start: 20230202, end: 20230202
  3. TRIPTORELIN PAMOATE [Suspect]
     Active Substance: TRIPTORELIN PAMOATE
     Indication: Prostate cancer
     Dosage: 1.00 X 24 WEEKS; ZINR: 15533212 (22.5 MG,24 WK)
     Route: 030
     Dates: start: 20230720, end: 20230720

REACTIONS (1)
  - Terminal state [Unknown]
